FAERS Safety Report 5797474-0 (Version None)
Quarter: 2008Q2

REPORT INFORMATION
  Report Type: 
  Country: None (occurrence: None)
  Receive Date: 20080630
  Receipt Date: 20080617
  Transmission Date: 20081010
  Serious: Yes (Hospitalization)
  Sender: FDA-Public Use
  Company Number: GXKR2008US05769

PATIENT
  Age: 71 Year
  Sex: Female

DRUGS (12)
  1. AMIODARONE HCL [Suspect]
     Indication: ARRHYTHMIA
     Dosage: 200 MG, TID, ORAL, 200 MG, QD
     Route: 048
  2. CALCIUM ACETATE (CALCIUM ACETATE) [Concomitant]
  3. IRON (IRON) [Concomitant]
  4. FUROSEMIDE [Concomitant]
  5. POTASSIUM (POTASSIUM) [Concomitant]
  6. HYDRALAZINE HCL [Concomitant]
  7. PREDNISONE TAB [Concomitant]
  8. PANTOPRAZOLE SODIUM [Concomitant]
  9. SODIUM BICARBONATE IN PLASTIC CONTAINER [Concomitant]
  10. CLONIDINE [Concomitant]
  11. INSULIN GLARGINE (INSULIN GLARGINE) [Concomitant]
  12. NIFEDIPINE [Concomitant]

REACTIONS (11)
  - ACCIDENTAL OVERDOSE [None]
  - ALANINE AMINOTRANSFERASE INCREASED [None]
  - ARTERIOSCLEROSIS [None]
  - ASPARTATE AMINOTRANSFERASE INCREASED [None]
  - CORNEAL DEPOSITS [None]
  - HEPATOTOXICITY [None]
  - KERATOPATHY [None]
  - KIDNEY FIBROSIS [None]
  - LIPID METABOLISM DISORDER [None]
  - LIPIDOSIS [None]
  - RENAL FAILURE CHRONIC [None]
